FAERS Safety Report 19797994 (Version 1)
Quarter: 2021Q3

REPORT INFORMATION
  Report Type: Spontaneous
  Country: US (occurrence: US)
  Receive Date: 20210906
  Receipt Date: 20210906
  Transmission Date: 20211014
  Serious: Yes (Disabling)
  Sender: FDA-Public Use
  Company Number: None

PATIENT
  Age: 62 Year
  Sex: Male
  Weight: 82.1 kg

DRUGS (3)
  1. ALBUTERAL SULFATE INHALATION AEROSOL 90 MCG PER ACTUATION [Suspect]
     Active Substance: ALBUTEROL SULFATE
     Indication: ASTHMA
     Dosage: ?          QUANTITY:200 ;?
     Dates: start: 20210621, end: 20210904
  2. LISINOPRIL. [Concomitant]
     Active Substance: LISINOPRIL
  3. FLOVENT [Concomitant]
     Active Substance: FLUTICASONE PROPIONATE

REACTIONS (4)
  - Device delivery system issue [None]
  - Dyspnoea [None]
  - Product substitution issue [None]
  - Device failure [None]

NARRATIVE: CASE EVENT DATE: 20210903
